FAERS Safety Report 8915672 (Version 2)
Quarter: 2012Q4

REPORT INFORMATION
  Report Type: 
  Country: FR (occurrence: FR)
  Receive Date: 20121119
  Receipt Date: 20121204
  Transmission Date: 20130627
  Serious: Yes (Other)
  Sender: FDA-Public Use
  Company Number: FR-ABBOTT-12P-056-1009141-00

PATIENT
  Sex: Female

DRUGS (3)
  1. KALETRA [Suspect]
     Indication: HIV INFECTION
     Dosage: 200/50
     Route: 048
     Dates: start: 20090518, end: 20120806
  2. TRUVADA [Concomitant]
     Indication: HIV INFECTION
     Dosage: DF : 200/245  mg
     Route: 048
     Dates: start: 2007
  3. TRUVADA [Concomitant]
     Dates: start: 20091026, end: 20100222

REACTIONS (5)
  - International normalised ratio abnormal [Unknown]
  - Diarrhoea [Recovered/Resolved]
  - Abdominal pain [Recovered/Resolved]
  - Gastrointestinal haemorrhage [Unknown]
  - Intestinal ulcer [Unknown]
